FAERS Safety Report 5092253-4 (Version None)
Quarter: 2006Q3

REPORT INFORMATION
  Report Type: 
  Country: None (occurrence: None)
  Receive Date: 20060828
  Receipt Date: 20060828
  Transmission Date: 20061208
  Serious: Yes (Other)
  Sender: FDA-Public Use
  Company Number: None

PATIENT
  Age: 24 Year
  Sex: Female
  Weight: 49.8957 kg

DRUGS (2)
  1. PHENERGAN [Suspect]
     Indication: NAUSEA
     Dosage: GIVEN IN THE ER  ONCE IV
     Route: 042
     Dates: start: 20060806, end: 20060806
  2. PHENERGAN [Suspect]
     Indication: VOMITING
     Dosage: GIVEN IN THE ER  ONCE IV
     Route: 042
     Dates: start: 20060806, end: 20060806

REACTIONS (6)
  - CRYING [None]
  - INFUSION SITE PAIN [None]
  - PAIN IN EXTREMITY [None]
  - PHLEBITIS [None]
  - SCREAMING [None]
  - SENSATION OF PRESSURE [None]
